FAERS Safety Report 25406055 (Version 1)
Quarter: 2025Q2

REPORT INFORMATION
  Report Type: Spontaneous
  Country: US (occurrence: US)
  Receive Date: 20250606
  Receipt Date: 20250606
  Transmission Date: 20250716
  Serious: No
  Sender: PIERRE FABRE MEDICAMENT
  Company Number: US-PFM-2024-05820

PATIENT
  Age: 0 Year
  Sex: Male
  Weight: 7.24 kg

DRUGS (2)
  1. HEMANGEOL [Suspect]
     Active Substance: PROPRANOLOL HYDROCHLORIDE
     Indication: Haemangioma
     Dosage: 2 ML, BID (2/DAY)
     Dates: start: 20240920
  2. PEPCID [Concomitant]
     Active Substance: FAMOTIDINE
     Indication: Product used for unknown indication
     Route: 065

REACTIONS (2)
  - Insomnia [Recovering/Resolving]
  - Irritability [Recovering/Resolving]

NARRATIVE: CASE EVENT DATE: 20241020
